FAERS Safety Report 8354807-9 (Version None)
Quarter: 2012Q2

REPORT INFORMATION
  Report Type: 
  Country: None (occurrence: None)
  Receive Date: 20120511
  Receipt Date: 20120504
  Transmission Date: 20120825
  Serious: Yes (Hospitalization)
  Sender: FDA-Public Use
  Company Number: US-CELGENEUS-163-21880-12050930

PATIENT
  Sex: Male
  Weight: 84.444 kg

DRUGS (12)
  1. MULTI-VITAMINS [Concomitant]
     Route: 065
  2. VITAMIN D [Concomitant]
     Route: 065
  3. BACTRIM [Concomitant]
     Route: 065
  4. SYMBICORT [Concomitant]
     Route: 065
  5. REVLIMID [Suspect]
     Indication: MULTIPLE MYELOMA
     Dosage: 25 MILLIGRAM
     Route: 048
     Dates: start: 20120405
  6. ALLOPURINOL [Concomitant]
     Route: 065
  7. ZOVIRAX [Concomitant]
     Route: 065
  8. OXYCONTIN [Concomitant]
     Route: 065
  9. DEXAMETHASONE TAB [Concomitant]
     Route: 065
  10. SENOKOT [Concomitant]
     Route: 065
  11. OXYCODONE HCL [Concomitant]
     Route: 065
  12. VALTREX [Concomitant]
     Route: 065

REACTIONS (2)
  - BACTERIAL INFECTION [None]
  - BLOOD SODIUM DECREASED [None]
